FAERS Safety Report 5281575-X (Version None)
Quarter: 2007Q1

REPORT INFORMATION
  Report Type: 
  Country: None (occurrence: None)
  Receive Date: 20061222
  Receipt Date: 20061121
  Transmission Date: 20070707
  Serious: Yes (Hospitalization)
  Sender: FDA-Public Use
  Company Number: 2006ADE/NIFED-028

PATIENT
  Age: 38 Year
  Sex: Female

DRUGS (3)
  1. NIFEDIPINE [Suspect]
     Dosage: 30MG, DAILY, ORAL
     Route: 048
  2. NIFEDIPINE [Suspect]
     Dosage: 60MG, DAILY, ORAL
     Route: 048
  3. BETAMETHASONE [Concomitant]

REACTIONS (1)
  - ATRIAL FIBRILLATION [None]
